FAERS Safety Report 20318106 (Version 2)
Quarter: 2022Q1

REPORT INFORMATION
  Report Type: Report from Study
  Country: KR (occurrence: KR)
  Receive Date: 20220110
  Receipt Date: 20220127
  Transmission Date: 20220423
  Serious: Yes (Death, Hospitalization)
  Sender: FDA-Public Use
  Company Number: KR-NOVARTISPH-NVSC2021KR302013

PATIENT
  Sex: Male
  Weight: 56 kg

DRUGS (6)
  1. RYDAPT [Suspect]
     Active Substance: MIDOSTAURIN
     Indication: Acute myeloid leukaemia
     Dosage: 50 MG
     Route: 048
     Dates: start: 20210806, end: 20210918
  2. MAXIPIME [Concomitant]
     Active Substance: CEFEPIME HYDROCHLORIDE
     Indication: Acute myeloid leukaemia
     Dosage: 6 G
     Route: 065
     Dates: start: 20210806, end: 20210809
  3. CYTARABINE [Concomitant]
     Active Substance: CYTARABINE
     Indication: Acute myeloid leukaemia
     Dosage: 326 MG, PFIZER (STRENGTH 100MG/5ML)
     Route: 065
     Dates: start: 20210720, end: 20210726
  4. CYTARABINE [Concomitant]
     Active Substance: CYTARABINE
     Dosage: 326 MG, PFIZER (STRENGTH 100MG/5ML)
     Route: 065
     Dates: start: 20210907, end: 20210913
  5. DAUNORUBICIN HYDROCHLORIDE [Concomitant]
     Active Substance: DAUNORUBICIN HYDROCHLORIDE
     Indication: Acute myeloid leukaemia
     Dosage: 64 MG
     Route: 065
     Dates: start: 20210720, end: 20210724
  6. DAUNORUBICIN HYDROCHLORIDE [Concomitant]
     Active Substance: DAUNORUBICIN HYDROCHLORIDE
     Dosage: 65.2 MG
     Route: 065
     Dates: start: 20210907, end: 20210909

REACTIONS (1)
  - Cytopenia [Fatal]

NARRATIVE: CASE EVENT DATE: 20210914
